FAERS Safety Report 5838439-X (Version None)
Quarter: 2008Q3

REPORT INFORMATION
  Report Type: 
  Country: None (occurrence: None)
  Receive Date: 20080808
  Receipt Date: 20080730
  Transmission Date: 20090109
  Serious: Yes (Death, Hospitalization)
  Sender: FDA-Public Use
  Company Number: JP-JNJFOC-20040806283

PATIENT
  Age: 70 Year
  Sex: Male

DRUGS (3)
  1. LEVOFLOXACIN [Suspect]
     Indication: ANTIBIOTIC PROPHYLAXIS
     Route: 048
  2. TAXOTERE [Concomitant]
     Indication: NON-SMALL CELL LUNG CANCER
     Route: 042
  3. CARBOPLATIN [Concomitant]
     Indication: NON-SMALL CELL LUNG CANCER
     Route: 042

REACTIONS (5)
  - BRONCHOPNEUMONIA [None]
  - COUGH [None]
  - DYSPNOEA [None]
  - LUNG NEOPLASM MALIGNANT [None]
  - PERFORMANCE STATUS DECREASED [None]
